FAERS Safety Report 19402127 (Version 1)
Quarter: 2021Q2

REPORT INFORMATION
  Report Type: Report from Study
  Country: US (occurrence: US)
  Receive Date: 20210610
  Receipt Date: 20210610
  Transmission Date: 20210717
  Serious: Yes (Hospitalization, Other)
  Sender: FDA-Public Use
  Company Number: US-BRISTOL-MYERS SQUIBB COMPANY-BMS-2021-055960

PATIENT
  Age: 61 Year
  Sex: Female

DRUGS (1)
  1. ABATACEPT [Suspect]
     Active Substance: ABATACEPT
     Indication: PRODUCT USED FOR UNKNOWN INDICATION
     Dosage: UNK
     Route: 058

REACTIONS (7)
  - Rheumatoid arthritis [Unknown]
  - Asthma [Unknown]
  - Anxiety [Unknown]
  - Osteoporosis [Unknown]
  - Intervertebral disc protrusion [Unknown]
  - Limb discomfort [Unknown]
  - Sciatica [Unknown]
